FAERS Safety Report 6019056-8 (Version None)
Quarter: 2008Q4

REPORT INFORMATION
  Report Type: 
  Country: None (occurrence: None)
  Receive Date: 20081224
  Receipt Date: 20081219
  Transmission Date: 20090506
  Serious: Yes (Death, Hospitalization, Other)
  Sender: FDA-Public Use
  Company Number: US-ASTRAZENECA-2007UW25550

PATIENT
  Age: 94 Year
  Sex: Male
  Weight: 61.1 kg

DRUGS (16)
  1. SEROQUEL [Suspect]
     Indication: DEMENTIA ALZHEIMER'S TYPE
     Route: 048
     Dates: start: 20071002
  2. SEROQUEL [Suspect]
     Dosage: 25-150 MG PO HS
     Route: 048
     Dates: start: 20070730, end: 20071001
  3. SEROQUEL [Suspect]
     Dosage: 25 MG AT NOON AND 125 MG AT BEDTIME
     Route: 048
     Dates: start: 20080312
  4. DONEPEZIL HCL [Concomitant]
  5. HYDROCHLOROTHIAZIDE [Concomitant]
  6. LISINOPRIL [Concomitant]
     Route: 048
  7. OMEPRAZOLE [Concomitant]
     Route: 048
  8. SERTRALINE [Concomitant]
  9. TIMOLOL [Concomitant]
  10. TRAVOPROST [Concomitant]
  11. TRAZODONE [Concomitant]
  12. ASPIRIN [Concomitant]
  13. DOCUSATE SODIUM [Concomitant]
  14. VERAPAMIL [Concomitant]
  15. GALANTAMINE HYDROBROMIDE [Concomitant]
  16. BRIMONIDINE [Concomitant]
     Route: 047

REACTIONS (4)
  - DEATH [None]
  - DEHYDRATION [None]
  - PNEUMONIA ASPIRATION [None]
  - RENAL FAILURE ACUTE [None]
